FAERS Safety Report 9241383 (Version 1)
Quarter: 2013Q2

REPORT INFORMATION
  Report Type: Spontaneous
  Country: US (occurrence: US)
  Receive Date: 20130418
  Receipt Date: 20130418
  Transmission Date: 20140414
  Serious: No
  Sender: FDA-Public Use
  Company Number: US-SANOFI-AVENTIS-2012SA087724

PATIENT
  Age: 33 Year
  Sex: Female

DRUGS (2)
  1. LOVENOX [Suspect]
     Route: 065
     Dates: start: 20121121, end: 20121121
  2. LOVENOX [Suspect]
     Route: 065
     Dates: start: 20121121, end: 20121121

REACTIONS (1)
  - Injury associated with device [Recovered/Resolved]
